FAERS Safety Report 11445843 (Version 1)
Quarter: 2015Q3

REPORT INFORMATION
  Report Type: Spontaneous
  Country: US (occurrence: US)
  Receive Date: 20150831
  Receipt Date: 20150831
  Transmission Date: 20151125
  Serious: No
  Sender: FDA-Public Use
  Company Number: US-ELI_LILLY_AND_COMPANY-US200808000961

PATIENT
  Age: 74 Year
  Sex: Female

DRUGS (7)
  1. LISINOPRIL. [Concomitant]
     Active Substance: LISINOPRIL
  2. LIPITOR [Concomitant]
     Active Substance: ATORVASTATIN CALCIUM
  3. PLAVIX [Concomitant]
     Active Substance: CLOPIDOGREL BISULFATE
  4. ADVAIR HFA [Concomitant]
     Active Substance: FLUTICASONE PROPIONATE\SALMETEROL XINAFOATE
  5. POTASSIUM [Concomitant]
     Active Substance: POTASSIUM
  6. HYDROCHLOROTHIAZIDE. [Concomitant]
     Active Substance: HYDROCHLOROTHIAZIDE
  7. CYMBALTA [Suspect]
     Active Substance: DULOXETINE HYDROCHLORIDE
     Indication: MUSCLE SPASMS
     Dosage: 30 MG, DAILY (1/D)
     Dates: start: 2008, end: 200807

REACTIONS (9)
  - Fall [Recovering/Resolving]
  - Visual impairment [Recovering/Resolving]
  - Abnormal behaviour [Recovering/Resolving]
  - Contusion [Recovering/Resolving]
  - Crying [Recovering/Resolving]
  - Abnormal dreams [Recovering/Resolving]
  - Head injury [Recovering/Resolving]
  - Limb injury [Recovering/Resolving]
  - Suture insertion [Recovering/Resolving]

NARRATIVE: CASE EVENT DATE: 200807
